FAERS Safety Report 7207190-6 (Version None)
Quarter: 2011Q1

REPORT INFORMATION
  Report Type: 
  Country: None (occurrence: None)
  Receive Date: 20110103
  Receipt Date: 20101221
  Transmission Date: 20110831
  Serious: Yes (Other)
  Sender: FDA-Public Use
  Company Number: US-ELI_LILLY_AND_COMPANY-US201012004047

PATIENT
  Sex: Male

DRUGS (4)
  1. HUMALOG [Suspect]
     Indication: TYPE 2 DIABETES MELLITUS
     Dosage: UNK, 3/D
     Dates: start: 20100601
  2. LANTUS [Concomitant]
  3. HUMALOG MIX 75/25 [Suspect]
  4. HUMALOG [Suspect]
     Dosage: UNK, 3/D
     Dates: start: 20100601

REACTIONS (6)
  - NASOPHARYNGITIS [None]
  - DYSPNOEA [None]
  - DRUG INEFFECTIVE [None]
  - VITRECTOMY [None]
  - INFLUENZA [None]
  - VISUAL IMPAIRMENT [None]
